FAERS Safety Report 22268341 (Version 1)
Quarter: 2023Q2

REPORT INFORMATION
  Report Type: Other
  Country: CZ (occurrence: None)
  Receive Date: 20230430
  Receipt Date: 20230430
  Transmission Date: 20230722
  Serious: Yes (Other)
  Sender: FDA-Public Use
  Company Number: CZ-ROCHE-3339289

PATIENT
  Age: 70 Year
  Sex: Male

DRUGS (2)
  1. ERIVEDGE [Suspect]
     Active Substance: VISMODEGIB
     Indication: Basal cell carcinoma
     Route: 065
     Dates: start: 20200129, end: 202101
  2. CEMIPLIMAB [Concomitant]
     Active Substance: CEMIPLIMAB
     Indication: Basal cell carcinoma
     Route: 065
     Dates: start: 20211022

REACTIONS (4)
  - Disease progression [Unknown]
  - Seizure [Unknown]
  - Decreased appetite [Unknown]
  - COVID-19 [Unknown]
